FAERS Safety Report 18760804 (Version 1)
Quarter: 2021Q1

REPORT INFORMATION
  Report Type: Spontaneous
  Country: US (occurrence: US)
  Receive Date: 20210119
  Receipt Date: 20210119
  Transmission Date: 20210419
  Serious: Yes (Hospitalization)
  Sender: FDA-Public Use
  Company Number: None

PATIENT
  Age: 45 Year
  Sex: Male
  Weight: 85.3 kg

DRUGS (17)
  1. DEXAMETHASONE. [Concomitant]
     Active Substance: DEXAMETHASONE
  2. ZINC. [Concomitant]
     Active Substance: ZINC
  3. BAMLANIVIMAB. [Suspect]
     Active Substance: BAMLANIVIMAB
     Indication: COVID-19 TREATMENT
     Route: 042
     Dates: start: 20210112, end: 20210112
  4. VITAMIN C [Concomitant]
     Active Substance: ASCORBIC ACID
  5. FAMOTIDINE. [Concomitant]
     Active Substance: FAMOTIDINE
  6. INSULIN [Concomitant]
     Active Substance: INSULIN NOS
  7. VITAMIN D [Concomitant]
     Active Substance: VITAMIN D NOS
  8. LOSARTAN. [Concomitant]
     Active Substance: LOSARTAN
  9. OMNICEF [Concomitant]
     Active Substance: CEFDINIR
  10. AUGMENTIN [Concomitant]
     Active Substance: AMOXICILLIN\CLAVULANATE POTASSIUM
  11. GUAIFENESIN. [Concomitant]
     Active Substance: GUAIFENESIN
  12. REMDESIVIR. [Concomitant]
     Active Substance: REMDESIVIR
  13. ALBUTEROL. [Concomitant]
     Active Substance: ALBUTEROL
  14. ZITHROMAX [Concomitant]
     Active Substance: AZITHROMYCIN DIHYDRATE
  15. ENOXAPARIN [Concomitant]
     Active Substance: ENOXAPARIN
  16. METFORMIN [Concomitant]
     Active Substance: METFORMIN HYDROCHLORIDE
  17. ADVAIR HFA [Concomitant]
     Active Substance: FLUTICASONE PROPIONATE\SALMETEROL XINAFOATE

REACTIONS (3)
  - Tachypnoea [None]
  - Oxygen saturation decreased [None]
  - Dyspnoea [None]

NARRATIVE: CASE EVENT DATE: 20210112
